FAERS Safety Report 7959388-7 (Version None)
Quarter: 2011Q4

REPORT INFORMATION
  Report Type: 
  Country: None (occurrence: None)
  Receive Date: 20111206
  Receipt Date: 20111123
  Transmission Date: 20120403
  Serious: Yes (Hospitalization)
  Sender: FDA-Public Use
  Company Number: US-OPTIMER-20110061

PATIENT

DRUGS (3)
  1. COUMADIN [Concomitant]
     Indication: ATRIAL FIBRILLATION
     Dosage: UNK, QD
     Route: 048
     Dates: start: 20110201
  2. CARDIAZEM [Concomitant]
     Indication: ATRIAL FIBRILLATION
     Dosage: UNK
     Route: 048
     Dates: start: 20110201
  3. DIFICID [Suspect]
     Indication: CLOSTRIDIAL INFECTION
     Dosage: 200 MG, BID
     Route: 048
     Dates: start: 20111008, end: 20111017

REACTIONS (4)
  - DIARRHOEA [None]
  - PYREXIA [None]
  - CLOSTRIDIAL INFECTION [None]
  - DISEASE RECURRENCE [None]
